FAERS Safety Report 7279724-7 (Version None)
Quarter: 2011Q1

REPORT INFORMATION
  Report Type: 
  Country: None (occurrence: None)
  Receive Date: 20110203
  Receipt Date: 20110203
  Transmission Date: 20110831
  Serious: Yes (Other)
  Sender: FDA-Public Use
  Company Number: None

PATIENT
  Age: 4 Year
  Sex: Male
  Weight: 15.8759 kg

DRUGS (1)
  1. SINGULAIR [Suspect]
     Indication: ASTHMA
     Dosage: 4 MG ONCE A DAY
     Dates: start: 20101015, end: 20110130

REACTIONS (3)
  - FEAR OF DEATH [None]
  - ABNORMAL DREAMS [None]
  - AGGRESSION [None]
